FAERS Safety Report 21729082 (Version 2)
Quarter: 2023Q1

REPORT INFORMATION
  Report Type: Spontaneous
  Country: US (occurrence: US)
  Receive Date: 20221214
  Receipt Date: 20230329
  Transmission Date: 20230418
  Serious: Yes (Hospitalization)
  Sender: FDA-Public Use
  Company Number: US-002147023-NVSC2022US287114

PATIENT
  Sex: Male

DRUGS (2)
  1. VOTRIENT [Suspect]
     Active Substance: PAZOPANIB HYDROCHLORIDE
     Indication: Malignant connective tissue neoplasm
     Dosage: 800 MG, QD
     Route: 048
     Dates: start: 202208
  2. VOTRIENT [Suspect]
     Active Substance: PAZOPANIB HYDROCHLORIDE
     Indication: Soft tissue sarcoma

REACTIONS (9)
  - Renal disorder [Unknown]
  - Dehydration [Unknown]
  - Fluid retention [Unknown]
  - Taste disorder [Unknown]
  - Influenza [Unknown]
  - Hair colour changes [Unknown]
  - Stomatitis [Unknown]
  - Staphylococcal infection [Unknown]
  - Decreased appetite [Unknown]
